FAERS Safety Report 18221861 (Version 2)
Quarter: 2020Q4

REPORT INFORMATION
  Report Type: Spontaneous
  Country: FR (occurrence: FR)
  Receive Date: 20200902
  Receipt Date: 20201216
  Transmission Date: 20210113
  Serious: Yes (Death, Life-Threatening, Other)
  Sender: FDA-Public Use
  Company Number: FR-PFIZER INC-2020336967

PATIENT
  Age: 68 Year
  Sex: Male
  Weight: 97 kg

DRUGS (5)
  1. SOLUPRED [METHYLPREDNISOLONE SODIUM SUCCINATE] [Suspect]
     Active Substance: METHYLPREDNISOLONE SODIUM SUCCINATE
     Indication: LYMPHOMA
     Dosage: 120 MG, 1X/DAY
     Route: 048
     Dates: start: 20200730, end: 20200805
  2. DOXORUBICINE TEVA [Concomitant]
     Active Substance: DOXORUBICIN
     Indication: LYMPHOMA
     Dosage: 20 MG, 1X/DAY
     Route: 041
     Dates: start: 20200807, end: 20200808
  3. VINCRISTINE SULFATE. [Suspect]
     Active Substance: VINCRISTINE SULFATE
     Indication: LYMPHOMA
     Dosage: 2 MG, 1X/DAY (0.8 MG/DAY)
     Route: 041
     Dates: start: 20200731, end: 20200808
  4. ENDOXAN [CYCLOPHOSPHAMIDE] [Suspect]
     Active Substance: CYCLOPHOSPHAMIDE
     Indication: LYMPHOMA
     Dosage: 600 MG, 1X/DAY
     Route: 042
     Dates: start: 20200731, end: 20200731
  5. ETOPOPHOS [Concomitant]
     Active Substance: ETOPOSIDE PHOSPHATE
     Indication: LYMPHOMA
     Dosage: 200 MG, 1X/DAY
     Route: 041
     Dates: start: 20200807, end: 20200808

REACTIONS (2)
  - Blood bilirubin increased [Fatal]
  - Hepatitis [Fatal]

NARRATIVE: CASE EVENT DATE: 20200803
